FAERS Safety Report 6460839-8 (Version None)
Quarter: 2009Q4

REPORT INFORMATION
  Report Type: 
  Country: None (occurrence: None)
  Receive Date: 20091130
  Receipt Date: 20091119
  Transmission Date: 20100525
  Serious: Yes (Hospitalization)
  Sender: FDA-Public Use
  Company Number: DE-ASTRAZENECA-2009SE27683

PATIENT
  Age: 90 Year
  Sex: Female
  Weight: 59 kg

DRUGS (6)
  1. LISINOPRIL [Interacting]
     Indication: HYPERTENSION
     Route: 048
     Dates: start: 20070501, end: 20090525
  2. BISOPROLOL FUMARATE AND HYDROCHLOROTHIAZIDE [Suspect]
     Indication: HYPERTENSION
     Dosage: 5MG BISOPROLOL + 12.5MG HYDROCHLOROTHIAZIDE, 1 TABLET DAILY
     Route: 048
     Dates: start: 20070501, end: 20090525
  3. TORASEMIDE [Suspect]
     Indication: HYPERTENSION
     Route: 048
     Dates: start: 20070501, end: 20090525
  4. XIPAMIDE [Suspect]
     Indication: HYPERTENSION
     Route: 048
     Dates: end: 20090525
  5. OMEPRAZOLE [Concomitant]
     Indication: PROPHYLAXIS AGAINST GASTROINTESTINAL ULCER
     Route: 048
     Dates: start: 20070501
  6. GLIMEPIRIDE [Concomitant]
     Indication: TYPE 2 DIABETES MELLITUS
     Route: 048
     Dates: end: 20090525

REACTIONS (2)
  - ACUTE PRERENAL FAILURE [None]
  - DRUG INTERACTION [None]
